FAERS Safety Report 25522654 (Version 1)
Quarter: 2025Q3

REPORT INFORMATION
  Report Type: Spontaneous
  Country: US (occurrence: US)
  Receive Date: 20250707
  Receipt Date: 20250707
  Transmission Date: 20251021
  Serious: No
  Sender: BIOVITRUM
  Company Number: US-BIOVITRUM-2025-US-009097

PATIENT
  Sex: Female

DRUGS (1)
  1. PACRITINIB [Suspect]
     Active Substance: PACRITINIB
     Indication: Myelofibrosis

REACTIONS (3)
  - Lung infiltration [Unknown]
  - Pyrexia [Unknown]
  - Off label use [Recovered/Resolved]
